FAERS Safety Report 5125160-9 (Version None)
Quarter: 2006Q4

REPORT INFORMATION
  Report Type: 
  Country: None (occurrence: None)
  Receive Date: 20061006
  Receipt Date: 20060927
  Transmission Date: 20070319
  Serious: Yes (Other)
  Sender: FDA-Public Use
  Company Number: 2006118383

PATIENT
  Sex: Female

DRUGS (4)
  1. LYRICA [Suspect]
     Indication: NEURALGIA
     Dosage: 300 MG (150 MG, 2 IN 1 D)
     Dates: start: 20060801
  2. ACETAMINOPHEN [Concomitant]
  3. AMITRIPTYLINE HCL [Concomitant]
  4. CLONAZEPAM [Concomitant]

REACTIONS (1)
  - NEUTROPENIA [None]
